FAERS Safety Report 19832238 (Version 1)
Quarter: 2021Q3

REPORT INFORMATION
  Report Type: Spontaneous
  Country: US (occurrence: US)
  Receive Date: 20210915
  Receipt Date: 20210915
  Transmission Date: 20211014
  Serious: Yes (Hospitalization)
  Sender: FDA-Public Use
  Company Number: US-AVET LIFESCIENCES LTD-2021-AVET-000012

PATIENT
  Age: 22 Year
  Sex: Male

DRUGS (4)
  1. TEZACAFTOR [Concomitant]
     Active Substance: TEZACAFTOR
  2. IVACAFTOR [Concomitant]
     Active Substance: IVACAFTOR
  3. ELEXACAFTOR. [Concomitant]
     Active Substance: ELEXACAFTOR
  4. ACETAMINOPHEN. [Suspect]
     Active Substance: ACETAMINOPHEN
     Indication: PRODUCT USED FOR UNKNOWN INDICATION
     Dosage: 500 MILLIGRAM

REACTIONS (4)
  - Hepatic encephalopathy [Recovering/Resolving]
  - Lactic acidosis [Recovering/Resolving]
  - Acute hepatic failure [Recovering/Resolving]
  - Acute kidney injury [Recovering/Resolving]
